FAERS Safety Report 6053368-7 (Version None)
Quarter: 2009Q1

REPORT INFORMATION
  Report Type: 
  Country: None (occurrence: None)
  Receive Date: 20090127
  Receipt Date: 20080317
  Transmission Date: 20090719
  Serious: Yes (Hospitalization)
  Sender: FDA-Public Use
  Company Number: US-TEVA-165634USA

PATIENT
  Sex: Female

DRUGS (2)
  1. COPAXONE [Suspect]
     Indication: MULTIPLE SCLEROSIS
     Route: 058
     Dates: start: 20070813
  2. BETASERON [Suspect]
     Indication: MULTIPLE SCLEROSIS
     Dates: end: 20070813

REACTIONS (5)
  - BLOOD THYROID STIMULATING HORMONE DECREASED [None]
  - CONFUSIONAL STATE [None]
  - DISORIENTATION [None]
  - SPEECH DISORDER [None]
  - THYROID DISORDER [None]
